FAERS Safety Report 10993516 (Version 1)
Quarter: 2015Q2

REPORT INFORMATION
  Report Type: Spontaneous
  Country: None (occurrence: None)
  Receive Date: 20150406
  Receipt Date: 20150406
  Transmission Date: 20150821
  Serious: Yes (Other)
  Sender: FDA-Public Use
  Company Number: None

PATIENT
  Age: 53 Year
  Sex: Female
  Weight: 77.11 kg

DRUGS (7)
  1. VITAMINS [Concomitant]
     Active Substance: VITAMINS
  2. FISH OIL [Concomitant]
     Active Substance: FISH OIL
  3. TERBINAFINE [Suspect]
     Active Substance: TERBINAFINE
     Dosage: TAKEN BY MOUTH
     Route: 048
     Dates: start: 20150209, end: 20150217
  4. SYMBICORT [Concomitant]
     Active Substance: BUDESONIDE\FORMOTEROL FUMARATE DIHYDRATE
  5. TERBINAFINE [Suspect]
     Active Substance: TERBINAFINE
     Indication: ONYCHOMYCOSIS
     Dosage: TAKEN BY MOUTH
     Route: 048
     Dates: start: 20150209, end: 20150217
  6. ALBUTEROL. [Concomitant]
     Active Substance: ALBUTEROL
  7. ALIVE! NATURES WAY MULTIVITAMIN [Concomitant]
     Active Substance: MINERALS\VITAMINS

REACTIONS (5)
  - Pruritus [None]
  - No therapeutic response [None]
  - Burning sensation [None]
  - Photosensitivity reaction [None]
  - Paraesthesia [None]

NARRATIVE: CASE EVENT DATE: 20150217
